FAERS Safety Report 19032455 (Version 1)
Quarter: 2021Q1

REPORT INFORMATION
  Report Type: Spontaneous
  Country: US (occurrence: US)
  Receive Date: 20210319
  Receipt Date: 20210319
  Transmission Date: 20210420
  Serious: No
  Sender: FDA-Public Use
  Company Number: US-ASTELLAS-2020US022092

PATIENT
  Sex: Female

DRUGS (2)
  1. ITRACONAZOLE. [Concomitant]
     Active Substance: ITRACONAZOLE
     Indication: HISTOPLASMOSIS
     Dosage: UNK UNK, UNKNOWN FREQ.
     Route: 065
  2. CRESEMBA [Suspect]
     Active Substance: ISAVUCONAZONIUM SULFATE
     Indication: PRODUCT USED FOR UNKNOWN INDICATION
     Dosage: (ONE CAPSULE SUSPENDED IN 20ML OF WATER AND WAS GIVEN 5ML EVERY 30 MINUTES), UNKNOWN FREQ.
     Route: 065
     Dates: start: 20200624

REACTIONS (1)
  - Wrong technique in product usage process [Unknown]
